FAERS Safety Report 8175300-2 (Version None)
Quarter: 2012Q1

REPORT INFORMATION
  Report Type: 
  Country: None (occurrence: None)
  Receive Date: 20120229
  Receipt Date: 20120216
  Transmission Date: 20120608
  Serious: Yes (Hospitalization, Other)
  Sender: FDA-Public Use
  Company Number: PHHY2012US013700

PATIENT
  Age: 59 Year
  Sex: Male

DRUGS (16)
  1. NEUTRA-PHOS [Concomitant]
     Dosage: UNK UKN, UNK
  2. STRESSTABS [Concomitant]
     Dosage: UNK UKN, QD
  3. SENNA [Concomitant]
     Dosage: UNK UKN, UNK
  4. SENSIPAR [Concomitant]
     Dosage: 30 MG, QD
  5. VALGANCICLOVIR [Concomitant]
     Indication: PROPHYLAXIS
     Dosage: 450 MG, UNK
     Dates: start: 20080523, end: 20080728
  6. JANUVIA [Concomitant]
     Dosage: UNK UKN, QD
  7. ASPIRIN [Concomitant]
     Dosage: 81 MG, QD
  8. LASIX [Concomitant]
     Dosage: UNK UKN, UNK
  9. PROGRAF [Concomitant]
     Indication: IMMUNOSUPPRESSION
     Dosage: 10 MG, UNK
     Dates: start: 20080603, end: 20080728
  10. MEVACOR [Concomitant]
     Dosage: UNK UKN, UNK
  11. PREDNISONE TAB [Concomitant]
     Dosage: 10 MG IN THE MORNING AND 6 M
     Route: 048
  12. ROCALTROL [Concomitant]
     Dosage: 0.5 MG,  PER DAY
  13. CARDIZEM [Concomitant]
     Dosage: 240 MG, BID
  14. PEPCID [Concomitant]
     Dosage: UNK UKN, UNK
  15. MYFORTIC [Suspect]
     Indication: RENAL TRANSPLANT
     Dosage: 360 MG, BID
     Route: 048
     Dates: start: 20080523, end: 20080728
  16. PREDNISOLONE [Concomitant]
     Indication: IMMUNOSUPPRESSION
     Dosage: 5 MG, UNK
     Dates: start: 20080523, end: 20080730

REACTIONS (5)
  - CHOLECYSTITIS [None]
  - RENAL INJURY [None]
  - NEUTROPENIA [None]
  - KIDNEY TRANSPLANT REJECTION [None]
  - LEUKOPENIA [None]
